FAERS Safety Report 4337551-4 (Version None)
Quarter: 2004Q2

REPORT INFORMATION
  Report Type: 
  Country: None (occurrence: None)
  Receive Date: 20040408
  Receipt Date: 20031222
  Transmission Date: 20050107
  Serious: Yes (Other)
  Sender: FDA-Public Use
  Company Number: 234992K03USA

PATIENT
  Age: 46 Year
  Sex: Female
  Weight: 47.6277 kg

DRUGS (3)
  1. REBIF [Suspect]
     Indication: MULTIPLE SCLEROSIS
     Dosage: NOT REPORTED, 3 IN 1 WEEKS, NOT REPORTED
     Dates: start: 20030801
  2. LAMOTRIGINE [Concomitant]
  3. VITAMINS NOS [Concomitant]

REACTIONS (1)
  - INJECTION SITE NECROSIS [None]
